FAERS Safety Report 6595710-4 (Version None)
Quarter: 2010Q1

REPORT INFORMATION
  Report Type: 
  Country: None (occurrence: None)
  Receive Date: 20100216
  Receipt Date: 20100201
  Transmission Date: 20100710
  Serious: Yes (Hospitalization)
  Sender: FDA-Public Use
  Company Number: AMAG201000063

PATIENT
  Age: 33 Year
  Sex: Female
  Weight: 72.5 kg

DRUGS (9)
  1. FERAHEME [Suspect]
     Indication: IRON DEFICIENCY ANAEMIA
     Dosage: 510 MG, SINGLE, INTRAVENOUS
     Route: 042
     Dates: start: 20100126, end: 20100126
  2. ATIVAN [Concomitant]
  3. EPOGEN [Concomitant]
  4. LASIX [Concomitant]
  5. METOPROLOL TARTRATE [Concomitant]
  6. NORVASC [Concomitant]
  7. PHOSLO [Concomitant]
  8. RENVELA [Concomitant]
  9. SENSIPAR [Concomitant]

REACTIONS (7)
  - CHILLS [None]
  - FEELING HOT [None]
  - HYPERSENSITIVITY [None]
  - HYPOTENSION [None]
  - NECK PAIN [None]
  - OVARIAN CYST [None]
  - PANCREATITIS [None]
